FAERS Safety Report 7720712-1 (Version None)
Quarter: 2011Q3

REPORT INFORMATION
  Report Type: 
  Country: None (occurrence: None)
  Receive Date: 20110831
  Receipt Date: 20110817
  Transmission Date: 20111222
  Serious: Yes (Other)
  Sender: FDA-Public Use
  Company Number: PHHY2011BR74215

PATIENT
  Sex: Female

DRUGS (2)
  1. TENORMIN [Concomitant]
     Dosage: 50 MG, UNK
  2. DIOVAN [Suspect]
     Dosage: 150 MG, UNK

REACTIONS (2)
  - BLOOD PRESSURE DECREASED [None]
  - GASTRITIS [None]
